FAERS Safety Report 6341041-7 (Version None)
Quarter: 2009Q3

REPORT INFORMATION
  Report Type: 
  Country: None (occurrence: None)
  Receive Date: 20090904
  Receipt Date: 20090901
  Transmission Date: 20100115
  Serious: Yes (Disabling, Other)
  Sender: FDA-Public Use
  Company Number: A0805717A

PATIENT
  Age: 55 Year
  Sex: Female

DRUGS (17)
  1. LAMICTAL [Suspect]
     Route: 048
     Dates: start: 20090601
  2. IMMUNE GLOBULIN INTRAVENOUS (HUMAN) [Concomitant]
  3. MOTRIN [Concomitant]
  4. LISINOPRIL [Concomitant]
  5. SIMVASTATIN [Concomitant]
  6. CELEXA [Concomitant]
  7. TRAZODONE [Concomitant]
  8. ATIVAN [Concomitant]
  9. ABILIFY [Concomitant]
  10. ASPIRIN [Concomitant]
  11. FOLATE [Concomitant]
  12. AMBIEN [Concomitant]
  13. PROVIGIL [Concomitant]
  14. INSULIN [Concomitant]
  15. METFORMIN HCL [Concomitant]
  16. PROTONIX [Concomitant]
  17. CORTICOSTEROID [Concomitant]
     Route: 061

REACTIONS (3)
  - AFFECT LABILITY [None]
  - PAIN [None]
  - PRURIGO [None]
